APPROVED DRUG PRODUCT: FLUDARABINE PHOSPHATE
Active Ingredient: FLUDARABINE PHOSPHATE
Strength: 50MG/2ML (25MG/ML) **Federal Register determination that product was not discontinued or withdrawn for safety or effectiveness reasons**
Dosage Form/Route: INJECTABLE;INJECTION
Application: N022137 | Product #001
Applicant: CAPLIN ONE LABS LTD
Approved: Sep 21, 2007 | RLD: Yes | RS: No | Type: DISCN